FAERS Safety Report 8269028-8 (Version None)
Quarter: 2012Q2

REPORT INFORMATION
  Report Type: 
  Country: None (occurrence: None)
  Receive Date: 20120409
  Receipt Date: 20120322
  Transmission Date: 20120825
  Serious: Yes (Other)
  Sender: FDA-Public Use
  Company Number: CA-BAXTER-2012BAX000768

PATIENT
  Age: 14 Year

DRUGS (1)
  1. GAMMAGARD LIQUID [Suspect]

REACTIONS (1)
  - MENINGITIS ASEPTIC [None]
